FAERS Safety Report 15657070 (Version 1)
Quarter: 2018Q4

REPORT INFORMATION
  Report Type: Spontaneous
  Country: TR (occurrence: TR)
  Receive Date: 20181126
  Receipt Date: 20181126
  Transmission Date: 20190205
  Serious: Yes (Life-Threatening)
  Sender: FDA-Public Use
  Company Number: IND-TR-009507513-1811TUR006547

PATIENT
  Age: 6 Year
  Sex: Male
  Weight: 17 kg

DRUGS (10)
  1. MIDAZOLAM [Suspect]
     Active Substance: MIDAZOLAM HYDROCHLORIDE
  2. ARITMAL [Suspect]
     Active Substance: LIDOCAINE HYDROCHLORIDE
  3. TECARINE [Suspect]
     Active Substance: THEOBROMINE SODIUM ACETATE
     Dosage: 240MG,AMPUL
  4. IRON DEXTRAN [Suspect]
     Active Substance: IRON DEXTRAN
  5. PROPOFOL. [Suspect]
     Active Substance: PROPOFOL
     Dosage: VIAL
  6. ESMERON [Suspect]
     Active Substance: ROCURONIUM BROMIDE
     Dosage: UNK
  7. POFOL [Suspect]
     Active Substance: PROPOFOL
  8. TALINAT [Suspect]
     Active Substance: FENTANYL CITRATE
  9. SEVORANE [Suspect]
     Active Substance: SEVOFLURANE
  10. PREDNOL (DESONIDE) [Suspect]
     Active Substance: DESONIDE

REACTIONS (4)
  - Oedema [Recovered/Resolved]
  - Dermatitis allergic [Recovered/Resolved]
  - Hypersensitivity [Recovered/Resolved]
  - Muscle spasms [Recovered/Resolved]
